FAERS Safety Report 8342312-5 (Version None)
Quarter: 2012Q2

REPORT INFORMATION
  Report Type: 
  Country: None (occurrence: None)
  Receive Date: 20120507
  Receipt Date: 20120423
  Transmission Date: 20120825
  Serious: Yes (Hospitalization)
  Sender: FDA-Public Use
  Company Number: GB-ELI_LILLY_AND_COMPANY-GB201204008130

PATIENT
  Age: 89 Year
  Sex: Female
  Weight: 45.5 kg

DRUGS (13)
  1. ADCAL D3 [Concomitant]
     Dosage: 2 DF, QD
  2. FORTISIP [Concomitant]
  3. CITALOPRAM HYDROBROMIDE [Concomitant]
     Dosage: 10 MG, QD
  4. HIDROXOCOBALAMINA [Concomitant]
     Dosage: 1 DF, 3 MONTHS
  5. FLUTICASONE PROPIONATE/SALMETEROL [Concomitant]
     Dosage: 200 UG, QD
     Route: 055
  6. SIMVASTATIN [Concomitant]
     Dosage: 20 MG, QD
  7. POLYETHYLENE GLYCOL [Concomitant]
     Route: 048
  8. BISOPROLOL FUMARATE [Concomitant]
     Dosage: 2.5 MG, UNK
  9. OMEPRAZOLE [Concomitant]
     Dosage: 20 MG, QD
  10. FORTEO [Suspect]
     Indication: OSTEOPOROSIS
     Dosage: 20 UG, UNK
     Route: 042
     Dates: start: 20120201, end: 20120227
  11. TEMAZEPAM [Concomitant]
     Dosage: 10 MG, QD
  12. ASPIRIN [Concomitant]
     Dosage: 75 MG, QD
  13. HYPROMELLOSE [Concomitant]
     Indication: EYE PAIN
     Dosage: 1 DF, PRN

REACTIONS (10)
  - ANAEMIA [None]
  - TACHYPNOEA [None]
  - WHEEZING [None]
  - BRONCHOSPASM [None]
  - PALLOR [None]
  - CHRONIC OBSTRUCTIVE PULMONARY DISEASE [None]
  - DYSPNOEA [None]
  - RALES [None]
  - BRONCHITIS [None]
  - LOWER RESPIRATORY TRACT INFECTION [None]
